FAERS Safety Report 7389447-1 (Version None)
Quarter: 2011Q2

REPORT INFORMATION
  Report Type: 
  Country: None (occurrence: None)
  Receive Date: 20110401
  Receipt Date: 20110323
  Transmission Date: 20111010
  Serious: Yes (Hospitalization)
  Sender: FDA-Public Use
  Company Number: JP-BRISTOL-MYERS SQUIBB COMPANY-14528392

PATIENT
  Age: 31 Year
  Sex: Male

DRUGS (8)
  1. GLYCYRRHIZINIC ACID [Concomitant]
     Indication: HEPATITIS C
     Dosage: DOSE NOT CHANGED. 3.
     Route: 042
     Dates: start: 20070418
  2. STOCRIN CAPS 200 MG [Suspect]
     Indication: HIV INFECTION
     Route: 048
     Dates: start: 20050425, end: 20080713
  3. PARIET [Concomitant]
     Indication: GASTRITIS
     Dosage: TAB
     Route: 048
     Dates: end: 20080323
  4. OCTOCOG ALPHA [Concomitant]
     Indication: HAEMOPHILIA
  5. CYSTEINE [Concomitant]
     Indication: HEPATITIS C
     Dosage: DOSE NOT CHANGED. 3.
     Route: 042
     Dates: start: 20070418
  6. GLYCINE 1.5% [Concomitant]
     Indication: HEPATITIS C
     Dosage: DOSE NOT CHANGED.3.
     Route: 042
     Dates: start: 20070418
  7. TRUVADA [Suspect]
     Indication: HIV INFECTION
     Dosage: FORMULATION : TABS
     Route: 048
     Dates: start: 20050424
  8. KOGENATE [Concomitant]
     Indication: HAEMOPHILIA
     Dosage: 1 DOSAGE FORM=1000 MILLION UNIT; 1-3TIMES/MONTH;INJ.DOSE NOT CHANGED.
     Route: 042

REACTIONS (2)
  - LIVER FUNCTION TEST ABNORMAL [None]
  - ARTHRITIS BACTERIAL [None]
